FAERS Safety Report 19090310 (Version 3)
Quarter: 2021Q2

REPORT INFORMATION
  Report Type: Spontaneous
  Country: US (occurrence: US)
  Receive Date: 20210405
  Receipt Date: 20210422
  Transmission Date: 20210717
  Serious: No
  Sender: FDA-Public Use
  Company Number: US-GLAXOSMITHKLINE-US2021AMR072778

PATIENT
  Sex: Female

DRUGS (1)
  1. ZEJULA [Suspect]
     Active Substance: NIRAPARIB
     Indication: OVARIAN CANCER
     Dosage: 100 MG, QD
     Dates: start: 20210328

REACTIONS (8)
  - Adverse drug reaction [Recovering/Resolving]
  - Tongue dry [Unknown]
  - Nausea [Recovered/Resolved]
  - Epistaxis [Unknown]
  - Dizziness [Not Recovered/Not Resolved]
  - Blood potassium decreased [Unknown]
  - Halo vision [Unknown]
  - Fatigue [Unknown]
